FAERS Safety Report 5441827-7 (Version None)
Quarter: 2007Q3

REPORT INFORMATION
  Report Type: 
  Country: None (occurrence: None)
  Receive Date: 20070830
  Receipt Date: 20070830
  Transmission Date: 20080115
  Serious: Yes (Hospitalization)
  Sender: FDA-Public Use
  Company Number: None

PATIENT
  Age: 48 Year
  Sex: Male
  Weight: 79.2 kg

DRUGS (10)
  1. PHENYTOIN [Suspect]
     Dosage: PO
     Route: 048
  2. NORVASC [Concomitant]
  3. CHLORPROMAZINE [Concomitant]
  4. BENADRYL [Concomitant]
  5. FLUPHENAZINE [Concomitant]
  6. IBUPROGEN [Concomitant]
  7. FLOMAX [Concomitant]
  8. MAXZIDE [Concomitant]
  9. EFFEXOR XR [Concomitant]
  10. AMBIEN [Concomitant]

REACTIONS (6)
  - ANTICONVULSANT DRUG LEVEL INCREASED [None]
  - FLIGHT OF IDEAS [None]
  - HEAD INJURY [None]
  - LEGAL PROBLEM [None]
  - MENTAL STATUS CHANGES [None]
  - SPEECH DISORDER [None]
